FAERS Safety Report 18558385 (Version 1)
Quarter: 2020Q4

REPORT INFORMATION
  Report Type: Report from Study
  Country: IT (occurrence: IT)
  Receive Date: 20201130
  Receipt Date: 20201130
  Transmission Date: 20210114
  Serious: Yes (Other)
  Sender: FDA-Public Use
  Company Number: IT-ACCORD-209554

PATIENT
  Age: 49 Year
  Sex: Female
  Weight: 56 kg

DRUGS (1)
  1. OXALIPLATIN ACCORD [Suspect]
     Active Substance: OXALIPLATIN
     Indication: ADENOCARCINOMA OF COLON
     Dosage: STRENGTH:  5 MG/ML
     Route: 042
     Dates: start: 20200316, end: 20200916

REACTIONS (4)
  - Neuropathy peripheral [Recovering/Resolving]
  - Rash erythematous [Recovering/Resolving]
  - Feeling hot [Recovering/Resolving]
  - Erythema [Recovering/Resolving]

NARRATIVE: CASE EVENT DATE: 20200825
